FAERS Safety Report 6259346-7 (Version None)
Quarter: 2009Q3

REPORT INFORMATION
  Report Type: 
  Country: None (occurrence: None)
  Receive Date: 20090706
  Receipt Date: 20090617
  Transmission Date: 20100115
  Serious: Yes (Hospitalization)
  Sender: FDA-Public Use
  Company Number: PAR_03066_2009

PATIENT
  Sex: Male

DRUGS (13)
  1. IBUPROFEN [Suspect]
     Indication: OSTEOARTHRITIS
     Dosage: DF
     Dates: start: 20070922, end: 20081001
  2. IBUPROFEN [Suspect]
     Indication: RHEUMATOID ARTHRITIS
     Dosage: DF
     Dates: start: 20070922, end: 20081001
  3. IBUPROFEN [Suspect]
     Indication: OSTEOARTHRITIS
     Dosage: DF
  4. IBUPROFEN [Suspect]
     Indication: RHEUMATOID ARTHRITIS
     Dosage: DF
  5. NAPROXEN [Suspect]
     Indication: OSTEOARTHRITIS
     Dosage: DF
     Dates: start: 20070922, end: 20081010
  6. NAPROXEN [Suspect]
     Indication: RHEUMATOID ARTHRITIS
     Dosage: DF
     Dates: start: 20070922, end: 20081010
  7. NAPROXEN [Suspect]
     Indication: OSTEOARTHRITIS
     Dosage: DF
  8. NAPROXEN [Suspect]
     Indication: RHEUMATOID ARTHRITIS
     Dosage: DF
  9. DIAZEPAM [Suspect]
     Indication: DRUG USE FOR UNKNOWN INDICATION
     Dosage: 5 MG 1X/8 HOURS, AS NEEDED ORAL
     Route: 048
     Dates: start: 20080923, end: 20081010
  10. CELECOXIB [Suspect]
     Dosage: DF
     Dates: start: 20070922, end: 20081001
  11. CELECOXIB [Suspect]
     Dosage: DF
  12. PERCOCET [Suspect]
     Indication: DRUG USE FOR UNKNOWN INDICATION
     Dosage: 1980 MG, [5 MG/325 MG FOUR TIMES AN HOUR AS NEEDED] ORAL)
     Route: 048
     Dates: start: 20080923, end: 20081010
  13. ESOMRPRAZOLE [Concomitant]

REACTIONS (1)
  - MENTAL STATUS CHANGES [None]
